FAERS Safety Report 4524695-7 (Version None)
Quarter: 2004Q4

REPORT INFORMATION
  Report Type: 
  Country: None (occurrence: None)
  Receive Date: 20041211
  Receipt Date: 20041130
  Transmission Date: 20050328
  Serious: Yes (Hospitalization, Other)
  Sender: FDA-Public Use
  Company Number: AU-MERCK-0411AUS00240

PATIENT
  Age: 23 Year
  Sex: Male

DRUGS (3)
  1. VIOXX [Suspect]
     Indication: CARPAL TUNNEL SYNDROME
     Route: 048
     Dates: start: 20000101, end: 20040101
  2. ACETAMINOPHEN AND CODEINE PHOSPHATE [Concomitant]
     Route: 065
  3. CORTISONE [Concomitant]
     Route: 051

REACTIONS (3)
  - CARPAL TUNNEL SYNDROME [None]
  - CHEST PAIN [None]
  - MICTURITION DISORDER [None]
